FAERS Safety Report 7688123-5 (Version None)
Quarter: 2011Q3

REPORT INFORMATION
  Report Type: 
  Country: None (occurrence: None)
  Receive Date: 20110817
  Receipt Date: 20110804
  Transmission Date: 20111222
  Serious: Yes (Other)
  Sender: FDA-Public Use
  Company Number: JP-ELI_LILLY_AND_COMPANY-JP201108001347

PATIENT
  Age: 62 Year
  Sex: Female

DRUGS (4)
  1. CYMBALTA [Suspect]
     Indication: DEPRESSION
     Dosage: 40 MG, QD
     Route: 048
     Dates: end: 20110701
  2. CYMBALTA [Suspect]
     Dosage: 40 MG, QD
     Route: 048
  3. ANTIHYPERTENSIVES [Concomitant]
     Route: 048
  4. CYMBALTA [Suspect]
     Dosage: 60 MG, QD
     Route: 048
     Dates: start: 20110701

REACTIONS (4)
  - SOMNOLENCE [None]
  - FRACTURE [None]
  - DIZZINESS [None]
  - FALL [None]
